FAERS Safety Report 9439779 (Version 1)
Quarter: 2013Q3

REPORT INFORMATION
  Report Type: Spontaneous
  Country: DE (occurrence: DE)
  Receive Date: 20130805
  Receipt Date: 20130805
  Transmission Date: 20140515
  Serious: Yes (Hospitalization)
  Sender: FDA-Public Use
  Company Number: DE-JNJFOC-20130716206

PATIENT
  Age: 90 Year
  Sex: 0

DRUGS (10)
  1. XARELTO [Suspect]
     Indication: EMBOLISM VENOUS
     Route: 048
  2. XARELTO [Suspect]
     Indication: EMBOLISM VENOUS
     Route: 048
     Dates: start: 20130703
  3. XARELTO [Suspect]
     Indication: DEEP VEIN THROMBOSIS
     Route: 048
  4. XARELTO [Suspect]
     Indication: DEEP VEIN THROMBOSIS
     Route: 048
     Dates: start: 20130703
  5. PANTOPRAZOLE [Concomitant]
     Route: 065
  6. LOSARTAN [Concomitant]
     Route: 065
  7. BISOPROLOL [Concomitant]
     Route: 065
  8. FUROSEMID [Concomitant]
     Route: 065
  9. ASS [Concomitant]
     Route: 065
  10. TORASEMID [Concomitant]
     Route: 065

REACTIONS (1)
  - Haemoglobin decreased [Unknown]
